FAERS Safety Report 10246631 (Version 1)
Quarter: 2014Q2

REPORT INFORMATION
  Report Type: Spontaneous
  Country: GB (occurrence: GB)
  Receive Date: 20140619
  Receipt Date: 20140619
  Transmission Date: 20141212
  Serious: Yes (Other)
  Sender: FDA-Public Use
  Company Number: GB-MYLANLABS-2014S1013703

PATIENT
  Age: 72 Year
  Sex: Female
  Weight: 53 kg

DRUGS (5)
  1. ALENDRONIC ACID [Suspect]
     Dates: start: 20140127
  2. ADALAT [Concomitant]
     Dates: start: 20140127, end: 20140224
  3. ADCAL /00108001/ [Concomitant]
     Dates: start: 20140127, end: 20140224
  4. MUCOPOLYSACCHARIDES W/PARACETAMOL/PINUS SYLVE [Concomitant]
     Dates: start: 20140127, end: 20140224
  5. PARACETAMOL [Concomitant]
     Dates: start: 20140127, end: 20140224

REACTIONS (1)
  - Depression [Recovered/Resolved]
